FAERS Safety Report 8310267 (Version 16)
Quarter: 2015Q3

REPORT INFORMATION
  Report Type: Report from Study
  Country: BE (occurrence: BE)
  Receive Date: 20111223
  Receipt Date: 20150722
  Transmission Date: 20151125
  Serious: Yes (Hospitalization)
  Sender: FDA-Public Use
  Company Number: BE-ROCHE-1019757

PATIENT
  Age: 74 Year
  Sex: Female

DRUGS (12)
  1. VEMURAFENIB [Interacting]
     Active Substance: VEMURAFENIB
     Route: 048
     Dates: start: 20111201, end: 20111202
  2. CITALOPRAM [Concomitant]
     Active Substance: CITALOPRAM HYDROBROMIDE
     Route: 065
     Dates: start: 2000
  3. VEMURAFENIB [Interacting]
     Active Substance: VEMURAFENIB
     Route: 048
     Dates: start: 20111206
  4. ACENOCOUMAROL [Interacting]
     Active Substance: ACENOCOUMAROL
     Indication: PRODUCT USED FOR UNKNOWN INDICATION
     Route: 065
     Dates: start: 200204, end: 20111123
  5. ALDACTONE (BELGIUM) [Concomitant]
     Route: 065
     Dates: start: 20111117
  6. BISOPROLOL [Concomitant]
     Active Substance: BISOPROLOL
  7. PANTOMED (BELGIUM) [Concomitant]
     Route: 065
     Dates: start: 200908
  8. APOCARD RETARD [Concomitant]
     Route: 065
     Dates: start: 2008
  9. SIMVASTATIN. [Concomitant]
     Active Substance: SIMVASTATIN
     Route: 065
     Dates: start: 2000
  10. ZOPICLONE [Concomitant]
     Active Substance: ZOPICLONE
     Route: 065
     Dates: start: 1998
  11. LASIX [Concomitant]
     Active Substance: FUROSEMIDE
     Route: 065
     Dates: start: 201103
  12. VEMURAFENIB [Suspect]
     Active Substance: VEMURAFENIB
     Indication: METASTATIC MALIGNANT MELANOMA
     Dosage: DATE OF LAST DOSE PRIOR TO SAE: 01 DEC 2011?DATE OF LAST DOSE PRIOR TO SAE: 23/NOV/2011
     Route: 048
     Dates: start: 20111109, end: 20111124

REACTIONS (2)
  - Overdose [Recovered/Resolved with Sequelae]
  - Fall [Unknown]

NARRATIVE: CASE EVENT DATE: 20111124
